FAERS Safety Report 18970742 (Version 3)
Quarter: 2021Q3

REPORT INFORMATION
  Report Type: Spontaneous
  Country: US (occurrence: US)
  Receive Date: 20210304
  Receipt Date: 20210830
  Transmission Date: 20211014
  Serious: Yes (Other)
  Sender: FDA-Public Use
  Company Number: US-REDHILL BIOPHARMA-2021RDH00026

PATIENT
  Sex: Male

DRUGS (3)
  1. SYMBICORT [Suspect]
     Active Substance: BUDESONIDE\FORMOTEROL FUMARATE DIHYDRATE
     Indication: HYPERSENSITIVITY
     Dosage: 1 DF, 4X/DAY
     Route: 055
  2. UNSPECIFIED PAIN MANAGEMENT [Suspect]
     Active Substance: UNSPECIFIED INGREDIENT
  3. MOVANTIK [Suspect]
     Active Substance: NALOXEGOL OXALATE
     Dosage: UNK
     Dates: end: 2019

REACTIONS (11)
  - Brain injury [Unknown]
  - Bradycardia [Unknown]
  - Acute kidney injury [Recovered/Resolved]
  - Cardiac disorder [Recovered/Resolved]
  - Heart injury [Unknown]
  - Tissue injury [Unknown]
  - Respiratory disorder [Unknown]
  - Inadequate analgesia [Unknown]
  - Hypoxia [Unknown]
  - Sleep study abnormal [Unknown]
  - Ligament rupture [Not Recovered/Not Resolved]

NARRATIVE: CASE EVENT DATE: 2019
